FAERS Safety Report 9918341 (Version 6)
Quarter: 2015Q4

REPORT INFORMATION
  Report Type: Report from Study
  Country: BR (occurrence: BR)
  Receive Date: 20140224
  Receipt Date: 20151002
  Transmission Date: 20160305
  Serious: Yes (Hospitalization, Other)
  Sender: FDA-Public Use
  Company Number: BR-BIOGENIDEC-2014BI017681

PATIENT
  Age: 36 Year
  Sex: Female

DRUGS (6)
  1. TYSABRI [Suspect]
     Active Substance: NATALIZUMAB
     Indication: MULTIPLE SCLEROSIS
     Route: 042
     Dates: start: 201501
  2. TYLEX [Concomitant]
     Active Substance: ACETAMINOPHEN\CODEINE PHOSPHATE
     Indication: HEADACHE
  3. NITROFURONTOIN [Concomitant]
  4. DEXAMETHASONE. [Concomitant]
     Active Substance: DEXAMETHASONE
  5. TYSABRI [Suspect]
     Active Substance: NATALIZUMAB
     Indication: MULTIPLE SCLEROSIS
     Route: 042
     Dates: start: 20130628
  6. RIVOTRIL [Concomitant]
     Active Substance: CLONAZEPAM
     Indication: HYPERSOMNIA

REACTIONS (13)
  - Nuclear magnetic resonance imaging abnormal [Recovered/Resolved with Sequelae]
  - Eschar [Recovered/Resolved]
  - Prescribed underdose [Unknown]
  - Speech disorder [Recovered/Resolved with Sequelae]
  - Multiple sclerosis [Unknown]
  - Headache [Unknown]
  - Multiple sclerosis relapse [Recovered/Resolved with Sequelae]
  - Inflammation [Recovered/Resolved]
  - Phobia [Unknown]
  - Cerebral venous thrombosis [Recovered/Resolved with Sequelae]
  - Urinary tract infection [Recovered/Resolved]
  - Diplopia [Recovered/Resolved with Sequelae]
  - Confusional state [Unknown]

NARRATIVE: CASE EVENT DATE: 2013
